FAERS Safety Report 8555601-6 (Version None)
Quarter: 2012Q3

REPORT INFORMATION
  Report Type: 
  Country: None (occurrence: None)
  Receive Date: 20120731
  Receipt Date: 20120312
  Transmission Date: 20120928
  Serious: No
  Sender: FDA-Public Use
  Company Number: US-ASTRAZENECA-2010SE56730

PATIENT
  Age: 82 Year
  Sex: Male

DRUGS (5)
  1. SEROQUEL [Suspect]
     Route: 048
  2. SEROQUEL [Suspect]
     Dosage: GENERIC SEROQUEL
     Route: 048
  3. ATENOLOL [Concomitant]
  4. SEROQUEL [Suspect]
     Indication: DEMENTIA ALZHEIMER'S TYPE
     Route: 048
  5. LUPRON [Concomitant]

REACTIONS (4)
  - DRUG DOSE OMISSION [None]
  - AGGRESSION [None]
  - TREMOR [None]
  - PNEUMONIA [None]
